FAERS Safety Report 4289689-8 (Version None)
Quarter: 2004Q1

REPORT INFORMATION
  Report Type: 
  Country: None (occurrence: None)
  Receive Date: 20040126
  Receipt Date: 20040122
  Transmission Date: 20041129
  Serious: Yes (Hospitalization, Other)
  Sender: FDA-Public Use
  Company Number: HQWYE871625SEP03

PATIENT
  Sex: Female

DRUGS (5)
  1. RAPAMUNE [Suspect]
     Indication: RENAL TRANSPLANT
     Dosage: UNSPECIFIED, ORAL
     Route: 048
     Dates: start: 20030201
  2. LUPRON [Concomitant]
  3. PREDNISONE (PREDINISONE) [Concomitant]
  4. CELLCEPT (MYOCPHENOLATE MOFETIL) [Concomitant]
  5. MULTIVITAMINS, PLAIN [Concomitant]

REACTIONS (1)
  - PANCREATITIS [None]
